FAERS Safety Report 4768319-2 (Version None)
Quarter: 2005Q3

REPORT INFORMATION
  Report Type: 
  Country: None (occurrence: None)
  Receive Date: 20050906
  Receipt Date: 20050701
  Transmission Date: 20060218
  Serious: No
  Sender: FDA-Public Use
  Company Number: 2005-BP-11240BP

PATIENT

DRUGS (3)
  1. SPIRIVA [Suspect]
     Dosage: 18 MCG (18 MCG, QD), IH
     Route: 055
  2. FORADIL [Concomitant]
  3. PULMICORT [Concomitant]

REACTIONS (4)
  - DRY MOUTH [None]
  - GLOSSODYNIA [None]
  - PAIN [None]
  - PHARYNGOLARYNGEAL PAIN [None]
